FAERS Safety Report 10188790 (Version 3)
Quarter: 2014Q2

REPORT INFORMATION
  Report Type: Spontaneous
  Country: JP (occurrence: JP)
  Receive Date: 20140522
  Receipt Date: 20140618
  Transmission Date: 20141212
  Serious: Yes (Other)
  Sender: FDA-Public Use
  Company Number: JP-PFIZER INC-2014112823

PATIENT
  Age: 89 Year
  Sex: Female
  Weight: 41 kg

DRUGS (4)
  1. LYRICA [Suspect]
     Indication: NEURALGIA
     Dosage: 75 MG, 1X/DAY
     Route: 048
     Dates: start: 20140408, end: 20140420
  2. LAXOBERON [Suspect]
     Indication: CONSTIPATION
     Dosage: 10 GTT, 1X/DAY
     Route: 048
     Dates: start: 20140418, end: 20140418
  3. NORVASC [Concomitant]
     Indication: HYPERTENSION
     Dosage: 2.5 MG, 1X/DAY
     Route: 048
     Dates: start: 20130508
  4. CELECOX [Concomitant]
     Indication: BACK PAIN
     Dosage: 100 MG, 2X/DAY
     Route: 048
     Dates: start: 20130527

REACTIONS (7)
  - Urinary retention [Recovered/Resolved]
  - Neurogenic bladder [Recovered/Resolved]
  - Cystitis [Recovered/Resolved]
  - Constipation [Unknown]
  - Diarrhoea [Recovered/Resolved]
  - Proctalgia [Recovered/Resolved]
  - Proctitis [Recovered/Resolved]
